FAERS Safety Report 13302620 (Version 2)
Quarter: 2017Q1

REPORT INFORMATION
  Report Type: Spontaneous
  Country: US (occurrence: US)
  Receive Date: 20170307
  Receipt Date: 20170310
  Transmission Date: 20170428
  Serious: Yes (Hospitalization, Other)
  Sender: FDA-Public Use
  Company Number: US-BRISTOL-MYERS SQUIBB COMPANY-BMS-2017-018192

PATIENT
  Age: 38 Year
  Sex: Male

DRUGS (2)
  1. ELIQUIS [Suspect]
     Active Substance: APIXABAN
     Indication: PRODUCT USED FOR UNKNOWN INDICATION
     Dosage: TWO 2.5 MG TABLETS, BID
     Route: 065
  2. ELIQUIS [Suspect]
     Active Substance: APIXABAN
     Indication: DEEP VEIN THROMBOSIS
     Dosage: TWO 5 MG TABLETS, BID
     Route: 065

REACTIONS (4)
  - Drug dispensing error [Unknown]
  - Thrombosis [Unknown]
  - Deep vein thrombosis [Unknown]
  - Underdose [Unknown]

NARRATIVE: CASE EVENT DATE: 20170227
